FAERS Safety Report 23996986 (Version 1)
Quarter: 2024Q2

REPORT INFORMATION
  Report Type: Report from Study
  Country: CA (occurrence: CA)
  Receive Date: 20240621
  Receipt Date: 20240621
  Transmission Date: 20240716
  Serious: Yes (Other)
  Sender: FDA-Public Use
  Company Number: CA-ABBVIE-5808356

PATIENT
  Sex: Female

DRUGS (1)
  1. RINVOQ [Suspect]
     Active Substance: UPADACITINIB
     Indication: Crohn^s disease
     Dosage: FORM STRENGTH: 30 MILLIGRAM
     Route: 048
     Dates: start: 20240425

REACTIONS (12)
  - Stoma creation [Unknown]
  - Malaise [Unknown]
  - Pain [Unknown]
  - Discomfort [Unknown]
  - Stomal hernia [Unknown]
  - Stoma site pain [Unknown]
  - Stoma site discomfort [Unknown]
  - Dyspepsia [Unknown]
  - Eructation [Unknown]
  - Sensation of foreign body [Unknown]
  - Fatigue [Unknown]
  - Blood iron decreased [Unknown]

NARRATIVE: CASE EVENT DATE: 20240101
